FAERS Safety Report 8542088-2 (Version None)
Quarter: 2012Q3

REPORT INFORMATION
  Report Type: 
  Country: None (occurrence: None)
  Receive Date: 20120726
  Receipt Date: 20111019
  Transmission Date: 20120928
  Serious: No
  Sender: FDA-Public Use
  Company Number: US-ASTRAZENECA-2011SE63704

PATIENT
  Age: 22 Year
  Sex: Female

DRUGS (1)
  1. SEROQUEL XR [Suspect]
     Route: 048

REACTIONS (10)
  - DISTURBANCE IN ATTENTION [None]
  - BIPOLAR DISORDER [None]
  - PANIC ATTACK [None]
  - VOMITING [None]
  - ATTENTION DEFICIT/HYPERACTIVITY DISORDER [None]
  - CRYING [None]
  - ANXIETY [None]
  - MEMORY IMPAIRMENT [None]
  - MANIA [None]
  - STRESS [None]
